FAERS Safety Report 6154999-6 (Version None)
Quarter: 2009Q2

REPORT INFORMATION
  Report Type: 
  Country: None (occurrence: None)
  Receive Date: 20090414
  Receipt Date: 20090330
  Transmission Date: 20091009
  Serious: Yes (Other)
  Sender: FDA-Public Use
  Company Number: FR-GENENTECH-281042

PATIENT

DRUGS (3)
  1. RITUXIMAB [Suspect]
     Indication: IDIOPATHIC THROMBOCYTOPENIC PURPURA
     Dosage: 375 MG/KG, 1/WEEK
     Route: 042
  2. PARACETAMOL [Concomitant]
     Indication: PREMEDICATION
  3. METHYLPREDNISOLONE 4MG TAB [Concomitant]
     Indication: PREMEDICATION
     Dosage: 60 MG, UNK

REACTIONS (1)
  - SIGMOIDITIS [None]
